FAERS Safety Report 15003653 (Version 5)
Quarter: 2018Q3

REPORT INFORMATION
  Report Type: Report from Study
  Country: CA (occurrence: CA)
  Receive Date: 20180613
  Receipt Date: 20180809
  Transmission Date: 20181010
  Serious: Yes (Hospitalization, Other)
  Sender: FDA-Public Use
  Company Number: CA-BRISTOL-MYERS SQUIBB COMPANY-BMS-2017-071170

PATIENT
  Age: 42 Year
  Sex: Female
  Weight: 55.5 kg

DRUGS (2)
  1. NIVOLUMAB [Suspect]
     Active Substance: NIVOLUMAB
     Indication: MALIGNANT MELANOMA
     Dosage: 3 MG/KG, Q2WK
     Route: 042
     Dates: start: 20170801
  2. IPILIMUMAB [Suspect]
     Active Substance: IPILIMUMAB
     Indication: MALIGNANT MELANOMA
     Dosage: 1 MG/KG, Q3WK
     Route: 065
     Dates: start: 20170801

REACTIONS (23)
  - Neoplasm progression [Not Recovered/Not Resolved]
  - Drug prescribing error [Unknown]
  - Liver function test increased [Not Recovered/Not Resolved]
  - Back injury [Unknown]
  - Weight fluctuation [Unknown]
  - Headache [Not Recovered/Not Resolved]
  - Uveitis [Unknown]
  - Metastases to central nervous system [Unknown]
  - Fall [Unknown]
  - Gastric disorder [Unknown]
  - Chills [Not Recovered/Not Resolved]
  - Asthenia [Not Recovered/Not Resolved]
  - Musculoskeletal stiffness [Recovering/Resolving]
  - Ascites [Not Recovered/Not Resolved]
  - Off label use [Unknown]
  - Pyrexia [Not Recovered/Not Resolved]
  - Brain oedema [Unknown]
  - Noninfective encephalitis [Unknown]
  - Disorientation [Recovering/Resolving]
  - Abdominal pain upper [Recovered/Resolved]
  - Nausea [Recovering/Resolving]
  - Vomiting [Recovering/Resolving]
  - Metastases to nervous system [Unknown]

NARRATIVE: CASE EVENT DATE: 20170801
